APPROVED DRUG PRODUCT: ALLOPURINOL
Active Ingredient: ALLOPURINOL
Strength: 100MG
Dosage Form/Route: TABLET;ORAL
Application: A070950 | Product #001
Applicant: SUPERPHARM CORP
Approved: Nov 30, 1988 | RLD: No | RS: No | Type: DISCN